FAERS Safety Report 17418020 (Version 1)
Quarter: 2020Q1

REPORT INFORMATION
  Report Type: Spontaneous
  Country: FR (occurrence: FR)
  Receive Date: 20200214
  Receipt Date: 20200214
  Transmission Date: 20200409
  Serious: Yes (Life-Threatening)
  Sender: FDA-Public Use
  Company Number: FR-SUN PHARMACEUTICAL INDUSTRIES LTD-2020RR-236802

PATIENT
  Age: 38 Year
  Sex: Female

DRUGS (5)
  1. TOPLEXIL (GUAIFENESIN, OXOMEMAZINE, PARACETAMOL, SODIUM BENZOATE) [Suspect]
     Active Substance: ACETAMINOPHEN\GUAIFENESIN\OXOMEMAZINE\SODIUM BENZOATE
     Indication: POISONING DELIBERATE
     Dosage: 1 BOUTEILLE ENTIERE ()
     Route: 048
     Dates: start: 20191001, end: 20191001
  2. CONTRAMAL [Suspect]
     Active Substance: TRAMADOL HYDROCHLORIDE
     Indication: POISONING DELIBERATE
     Dosage: 1 GRAM, DAILY
     Route: 048
     Dates: start: 20191001, end: 20191001
  3. PARACETAMOL [Suspect]
     Active Substance: ACETAMINOPHEN
     Indication: POISONING DELIBERATE
     Dosage: IN TOTAL
     Route: 048
     Dates: start: 20191001, end: 20191001
  4. LORMETAZEPAM [Suspect]
     Active Substance: LORMETAZEPAM
     Indication: POISONING DELIBERATE
     Dosage: IN TOTAL
     Route: 048
     Dates: start: 20191001, end: 20191001
  5. ZYRTEC [Suspect]
     Active Substance: CETIRIZINE HYDROCHLORIDE
     Indication: POISONING DELIBERATE
     Dosage: IN TOTAL
     Route: 048
     Dates: start: 20191001, end: 20191001

REACTIONS (3)
  - Poisoning deliberate [Recovered/Resolved]
  - Prothrombin level decreased [Recovered/Resolved]
  - Hepatitis acute [Recovered/Resolved]

NARRATIVE: CASE EVENT DATE: 20191001
